FAERS Safety Report 4429375-4 (Version None)
Quarter: 2004Q3

REPORT INFORMATION
  Report Type: 
  Country: None (occurrence: None)
  Receive Date: 20040816
  Receipt Date: 20040806
  Transmission Date: 20050211
  Serious: Yes (Disabling)
  Sender: FDA-Public Use
  Company Number: 2004-118368-NL

PATIENT
  Age: 43 Year
  Sex: Female

DRUGS (9)
  1. MIRTAZAPINE [Suspect]
     Indication: DEPRESSION
     Dosage: 22.5 MG/7.5 MG/15 MG/30 MG/45 MG ORAL
     Route: 048
     Dates: start: 20030826, end: 20030901
  2. MIRTAZAPINE [Suspect]
     Indication: DEPRESSION
     Dosage: 22.5 MG/7.5 MG/15 MG/30 MG/45 MG ORAL
     Route: 048
     Dates: start: 20030902, end: 20030908
  3. MIRTAZAPINE [Suspect]
     Indication: DEPRESSION
     Dosage: 22.5 MG/7.5 MG/15 MG/30 MG/45 MG ORAL
     Route: 048
     Dates: start: 20030909, end: 20030915
  4. MIRTAZAPINE [Suspect]
     Indication: DEPRESSION
     Dosage: 22.5 MG/7.5 MG/15 MG/30 MG/45 MG ORAL
     Route: 048
     Dates: start: 20030916, end: 20031015
  5. MIRTAZAPINE [Suspect]
     Indication: DEPRESSION
     Dosage: 22.5 MG/7.5 MG/15 MG/30 MG/45 MG ORAL
     Route: 048
     Dates: start: 20031016, end: 20031125
  6. TRAZODONE [Concomitant]
  7. OXAZEPAM [Concomitant]
  8. BISOPROLOL FUMARATE [Concomitant]
  9. BISOPROLOL FUMARATE [Concomitant]

REACTIONS (3)
  - CARPAL TUNNEL SYNDROME [None]
  - REFLEX SYMPATHETIC DYSTROPHY [None]
  - WEIGHT INCREASED [None]
